FAERS Safety Report 5517335-1 (Version None)
Quarter: 2007Q4

REPORT INFORMATION
  Report Type: 
  Country: None (occurrence: None)
  Receive Date: 20071114
  Receipt Date: 20071024
  Transmission Date: 20080405
  Serious: No
  Sender: FDA-Public Use
  Company Number: A0689518A

PATIENT
  Age: 56 Year
  Sex: Female

DRUGS (1)
  1. COMMIT [Suspect]
     Dates: start: 20070609, end: 20070915

REACTIONS (6)
  - EXPIRED DRUG ADMINISTERED [None]
  - GINGIVAL PAIN [None]
  - INTENTIONAL DRUG MISUSE [None]
  - PALLOR [None]
  - PHARYNGOLARYNGEAL PAIN [None]
  - STOMACH DISCOMFORT [None]
